FAERS Safety Report 16065110 (Version 1)
Quarter: 2019Q1

REPORT INFORMATION
  Report Type: Spontaneous
  Country: GB (occurrence: GB)
  Receive Date: 20190313
  Receipt Date: 20190313
  Transmission Date: 20190418
  Serious: Yes (Other)
  Sender: FDA-Public Use
  Company Number: GB-AUROBINDO-AUR-APL-2019-012364

PATIENT

DRUGS (2)
  1. CARVEDILOL TABLETS [Suspect]
     Active Substance: CARVEDILOL
     Dosage: 12.5 MILLIGRAM, ONCE A DAY
     Route: 048
     Dates: start: 20190204
  2. CARVEDILOL TABLETS [Suspect]
     Active Substance: CARVEDILOL
     Indication: GASTRIC VARICES
     Dosage: 6.25 MILLIGRAM, ONCE A DAY, 6.25MG DAILY INCREASING AFTER 1 WEEK TO 12.5MG DAILY
     Route: 048
     Dates: start: 20190128, end: 20190204

REACTIONS (4)
  - Paraesthesia [Not Recovered/Not Resolved]
  - Epistaxis [Recovered/Resolved]
  - Pain in extremity [Not Recovered/Not Resolved]
  - Headache [Not Recovered/Not Resolved]

NARRATIVE: CASE EVENT DATE: 201901
